FAERS Safety Report 11934491 (Version 5)
Quarter: 2016Q4

REPORT INFORMATION
  Report Type: Report from Study
  Country: ES (occurrence: ES)
  Receive Date: 20160121
  Receipt Date: 20161002
  Transmission Date: 20170206
  Serious: Yes (Hospitalization)
  Sender: FDA-Public Use
  Company Number: PHHO2015ES017483

PATIENT
  Age: 52 Year
  Sex: Male
  Weight: 48.2 kg

DRUGS (7)
  1. MIDAZOLAM [Suspect]
     Active Substance: MIDAZOLAM\MIDAZOLAM HYDROCHLORIDE
     Dosage: 3 MG, QD
     Route: 048
     Dates: start: 20150616, end: 20150616
  2. ROSUVASTATIN CALCIUM. [Suspect]
     Active Substance: ROSUVASTATIN CALCIUM
     Indication: METASTATIC MALIGNANT MELANOMA
     Dosage: 10 MG, QD
     Route: 048
     Dates: start: 20150609
  3. MIDAZOLAM [Suspect]
     Active Substance: MIDAZOLAM\MIDAZOLAM HYDROCHLORIDE
     Indication: METASTATIC MALIGNANT MELANOMA
     Dosage: 3 MG, QD
     Route: 048
     Dates: start: 20150609, end: 20150609
  4. METOCLOPRAMIDE. [Concomitant]
     Active Substance: METOCLOPRAMIDE
     Indication: PROPHYLAXIS OF NAUSEA AND VOMITING
     Dosage: 10 MG, Q8H
     Route: 048
     Dates: start: 20150630, end: 20150701
  5. DABRAFENIB [Suspect]
     Active Substance: DABRAFENIB
     Indication: METASTATIC MALIGNANT MELANOMA
     Dosage: UNK
     Route: 048
     Dates: start: 20150616
  6. MIDAZOLAM [Suspect]
     Active Substance: MIDAZOLAM\MIDAZOLAM HYDROCHLORIDE
     Dosage: 3 MG, QD
     Route: 048
     Dates: start: 20150630, end: 20150630
  7. DEXAMETHASONE. [Concomitant]
     Active Substance: DEXAMETHASONE
     Indication: DECREASED APPETITE
     Dosage: 4 MG, BID
     Route: 048
     Dates: start: 20150629, end: 20150701

REACTIONS (2)
  - Hypotension [Recovered/Resolved]
  - Pyrexia [Recovered/Resolved]

NARRATIVE: CASE EVENT DATE: 20150630
